FAERS Safety Report 9272941 (Version 2)
Quarter: 2014Q1

REPORT INFORMATION
  Report Type: Report from Study
  Country: US (occurrence: US)
  Receive Date: 20130506
  Receipt Date: 20140325
  Transmission Date: 20141002
  Serious: Yes (Other)
  Sender: FDA-Public Use
  Company Number: US-ALEXION-A201201823

PATIENT
  Sex: Male
  Weight: 112 kg

DRUGS (9)
  1. SOLIRIS [Suspect]
     Indication: PAROXYSMAL NOCTURNAL HAEMOGLOBINURIA
     Dosage: UNK
     Route: 042
     Dates: start: 20120315
  2. SOLIRIS [Suspect]
     Dosage: 900 MG, Q2W
     Route: 042
  3. PREDNISONE [Concomitant]
     Dosage: 6 MG, QD FOR ONE WEEK
     Route: 048
  4. PREDNISONE [Concomitant]
     Dosage: 5 MG, Q OTHER DAY
     Dates: start: 20130321
  5. VALTREX [Concomitant]
     Dosage: 500 MG, QD
     Route: 048
  6. FERROUS SULFATE [Concomitant]
     Dosage: 325 MG, QD
     Route: 048
  7. ATOVAQUONE [Concomitant]
     Dosage: 750 MG/ML, 5 ML, QD
     Route: 048
  8. FOLIC ACID [Concomitant]
     Dosage: 1 MG, QD
     Route: 048
  9. COLACE [Concomitant]
     Dosage: 100 MG, QD
     Route: 048

REACTIONS (1)
  - Haemoglobin decreased [Recovering/Resolving]
